FAERS Safety Report 9260072 (Version 1)
Quarter: 2013Q2

REPORT INFORMATION
  Report Type: Spontaneous
  Country: GB (occurrence: GB)
  Receive Date: 20130429
  Receipt Date: 20130429
  Transmission Date: 20140414
  Serious: Yes (Hospitalization)
  Sender: FDA-Public Use
  Company Number: GB-TARO PHARMACEUTICALS U.S.A., INC-2013SUN00505

PATIENT
  Age: 74 Year
  Sex: Male

DRUGS (5)
  1. WARFARIN [Suspect]
     Indication: DEEP VEIN THROMBOSIS
     Dosage: UNK
     Route: 065
  2. AMOXICILLIN/CLAVULANIC ACID [Interacting]
     Indication: ULCER
     Dosage: 625 MG, TID
     Route: 065
  3. METRONIDAZOLE [Interacting]
     Indication: ULCER
     Dosage: 400 MG, TID
     Route: 065
  4. FLUCLOXACILLIN [Concomitant]
     Indication: ULCER
     Dosage: 500 MG, QID
     Route: 048
  5. PREDNISOLONE [Concomitant]

REACTIONS (2)
  - Drug interaction [None]
  - Skin necrosis [Recovering/Resolving]
